FAERS Safety Report 9620349 (Version 2)
Quarter: 2014Q1

REPORT INFORMATION
  Report Type: Report from Study
  Country: MX (occurrence: MX)
  Receive Date: 20131014
  Receipt Date: 20140124
  Transmission Date: 20141002
  Serious: Yes (Death)
  Sender: FDA-Public Use
  Company Number: MX-ROCHE-1288977

PATIENT
  Age: 67 Year
  Sex: Female
  Weight: 65 kg

DRUGS (4)
  1. HERCEPTIN [Suspect]
     Indication: BREAST CANCER
     Route: 065
  2. XELODA [Suspect]
     Indication: BREAST CANCER METASTATIC
     Dosage: (2-0-2) 500 MG DAILY FOR 15 DAYS AND 1 REST WEEK
     Route: 048
     Dates: start: 201012, end: 201206
  3. XELODA [Suspect]
     Dosage: (2-0-2) 500 MG DAILY FOR 15 DAYS X 1 REST WEEK
     Route: 048
     Dates: start: 201301, end: 201305
  4. LAPATINIB [Concomitant]
     Indication: BREAST CANCER METASTATIC
     Dosage: (2-0-2) 250 MG DAILY FOR 15 DAYS AND 1 REST WEEK
     Route: 048
     Dates: start: 201301, end: 201305

REACTIONS (5)
  - Disease progression [Fatal]
  - Decreased appetite [Recovered/Resolved]
  - Gastritis [Recovered/Resolved]
  - Colitis [Recovered/Resolved]
  - Oesophagitis [Recovered/Resolved]
